FAERS Safety Report 4655045-3 (Version None)
Quarter: 2005Q2

REPORT INFORMATION
  Report Type: 
  Country: None (occurrence: None)
  Receive Date: 20050504
  Receipt Date: 20050422
  Transmission Date: 20051028
  Serious: Yes (Other)
  Sender: FDA-Public Use
  Company Number: 2004075580

PATIENT
  Age: 23 Year
  Sex: Female

DRUGS (4)
  1. NEURONTIN [Suspect]
     Indication: GRAND MAL CONVULSION
     Dosage: 900 MG (300 MG, 3 IN 1 D), ORAL
     Route: 048
     Dates: start: 20040101
  2. DILANTIN [Suspect]
     Indication: GRAND MAL CONVULSION
     Dosage: 300 MG (100 MG, 3 IN 1 D),ORAL
     Route: 048
  3. CITALOPRAM HYDROBROMIDE [Concomitant]
  4. TOPIRAMATE [Suspect]
     Indication: GRAND MAL CONVULSION
     Dosage: 300 MG (200MG AM, 100MG PM), ORAL
     Route: 048
     Dates: start: 20040101

REACTIONS (13)
  - BLOOD PRESSURE INCREASED [None]
  - CHEST PAIN [None]
  - CONFUSIONAL STATE [None]
  - GINGIVAL PAIN [None]
  - GINGIVAL SWELLING [None]
  - HEADACHE [None]
  - LABORATORY TEST ABNORMAL [None]
  - MEMORY IMPAIRMENT [None]
  - PARAESTHESIA [None]
  - TONGUE BITING [None]
  - TREMOR [None]
  - VOMITING [None]
  - WEIGHT INCREASED [None]
